FAERS Safety Report 9245932 (Version 1)
Quarter: 2013Q2

REPORT INFORMATION
  Report Type: Spontaneous
  Country: GB (occurrence: GB)
  Receive Date: 20130422
  Receipt Date: 20130422
  Transmission Date: 20140414
  Serious: Yes (Other)
  Sender: FDA-Public Use
  Company Number: GB-PFIZER INC-2013121766

PATIENT
  Age: 68 Year
  Sex: Male
  Weight: 83 kg

DRUGS (7)
  1. ATORVASTATIN [Suspect]
     Indication: BLOOD CHOLESTEROL INCREASED
     Dosage: 10 MG, 1X/DAY
     Route: 048
     Dates: start: 201209, end: 20121115
  2. HYDROCORTISONE [Concomitant]
     Dosage: UNK
  3. THYROXINE [Concomitant]
     Dosage: UNK
  4. CO-CODAMOL [Concomitant]
     Dosage: UNK
  5. DOSULEPIN [Concomitant]
     Dosage: UNK
  6. ARTHROTEC [Concomitant]
     Dosage: UNK
  7. TESTOSTERONE [Concomitant]
     Dosage: UNK

REACTIONS (4)
  - Musculoskeletal pain [Not Recovered/Not Resolved]
  - Muscle atrophy [Not Recovered/Not Resolved]
  - Joint lock [Not Recovered/Not Resolved]
  - Arthralgia [Not Recovered/Not Resolved]
